FAERS Safety Report 8477202 (Version 4)
Quarter: 2012Q4

REPORT INFORMATION
  Report Type: 
  Country: US (occurrence: US)
  Receive Date: 20120326
  Receipt Date: 20121130
  Transmission Date: 20130627
  Serious: Yes (Other)
  Sender: FDA-Public Use
  Company Number: US-ASTRAZENECA-2012SE10836

PATIENT
  Age: 78 Year
  Sex: Female

DRUGS (4)
  1. NEXIUM [Suspect]
     Route: 048
  2. CHEMOTHERAPY [Suspect]
     Route: 065
  3. COUMADIN [Concomitant]
  4. TAGAMET [Concomitant]

REACTIONS (12)
  - Metastases to gastrointestinal tract [Unknown]
  - Gastrooesophageal reflux disease [Unknown]
  - Cardiac murmur [Unknown]
  - Throat irritation [Unknown]
  - Gastric disorder [Unknown]
  - Nasal dryness [Unknown]
  - Pain in extremity [Unknown]
  - Polyp [Unknown]
  - Osteoporosis [Unknown]
  - Osteopenia [Unknown]
  - Dry throat [Unknown]
  - Cardiac disorder [Unknown]
